FAERS Safety Report 15497837 (Version 1)
Quarter: 2018Q4

REPORT INFORMATION
  Report Type: Spontaneous
  Country: US (occurrence: US)
  Receive Date: 20181015
  Receipt Date: 20181015
  Transmission Date: 20190205
  Serious: No
  Sender: FDA-Public Use
  Company Number: US-PFIZER INC-2018405832

PATIENT
  Age: 62 Year
  Sex: Male
  Weight: 116.1 kg

DRUGS (7)
  1. DILAUDID [Concomitant]
     Active Substance: HYDROMORPHONE HYDROCHLORIDE
     Indication: PAIN
     Dosage: UNK
  2. LYRICA [Suspect]
     Active Substance: PREGABALIN
     Indication: GUILLAIN-BARRE SYNDROME
     Dosage: 50 MG, THRICE A DAY
     Route: 048
  3. LYRICA [Suspect]
     Active Substance: PREGABALIN
     Dosage: 50 MG, TWICE A DAY
     Route: 048
  4. DOCUSATE SODIUM. [Concomitant]
     Active Substance: DOCUSATE SODIUM
     Dosage: 1 DF, DAILY
     Route: 048
  5. DILAUDID [Concomitant]
     Active Substance: HYDROMORPHONE HYDROCHLORIDE
     Indication: PAIN
     Dosage: UNK, AS NEEDED (EVERY 4 HOURS)
     Dates: start: 201803
  6. DOCUSATE SODIUM. [Concomitant]
     Active Substance: DOCUSATE SODIUM
     Indication: FAECES SOFT
     Dosage: 2 DF, TWICE DAILY
     Route: 048
     Dates: start: 201803
  7. GABAPENTIN. [Concomitant]
     Active Substance: GABAPENTIN
     Indication: GUILLAIN-BARRE SYNDROME
     Dosage: 1800 MG, DAILY
     Dates: start: 201803

REACTIONS (3)
  - Drug ineffective [Not Recovered/Not Resolved]
  - Memory impairment [Unknown]
  - Aggression [Unknown]
